FAERS Safety Report 21479407 (Version 1)
Quarter: 2022Q4

REPORT INFORMATION
  Report Type: Spontaneous
  Country: GB (occurrence: GB)
  Receive Date: 20221019
  Receipt Date: 20221019
  Transmission Date: 20230112
  Serious: Yes (Hospitalization, Other)
  Sender: FDA-Public Use
  Company Number: GB-AMGEN-GBRSP2022176794

PATIENT
  Sex: Female

DRUGS (1)
  1. ADALIMUMAB [Suspect]
     Active Substance: ADALIMUMAB
     Indication: Crohn^s disease
     Dosage: 40 MILLIGRAM, Q2WK
     Route: 058
     Dates: start: 2020

REACTIONS (7)
  - Crohn^s disease [Unknown]
  - Pain [Recovering/Resolving]
  - Peripheral swelling [Recovering/Resolving]
  - Thrombosis [Recovering/Resolving]
  - Rhinitis [Unknown]
  - Eye infection [Unknown]
  - Ear infection [Unknown]
